FAERS Safety Report 9614214 (Version 1)
Quarter: 2013Q4

REPORT INFORMATION
  Report Type: Spontaneous
  Country: SE (occurrence: SE)
  Receive Date: 20131011
  Receipt Date: 20131011
  Transmission Date: 20140711
  Serious: Yes (Other)
  Sender: FDA-Public Use
  Company Number: SE-ASTRAZENECA-2013SE73590

PATIENT
  Age: 52 Year
  Sex: Female

DRUGS (1)
  1. SEROQUEL DEPOT [Suspect]
     Indication: MENTAL DISORDER
     Route: 048

REACTIONS (1)
  - Breast cancer [Unknown]
